FAERS Safety Report 9097562 (Version 1)
Quarter: 2013Q1

REPORT INFORMATION
  Report Type: Spontaneous
  Country: US (occurrence: US)
  Receive Date: 20130212
  Receipt Date: 20130212
  Transmission Date: 20140127
  Serious: Yes (Other)
  Sender: FDA-Public Use
  Company Number: US-TEVA-279797USA

PATIENT
  Sex: 0

DRUGS (1)
  1. AMPHETAMINE [Suspect]

REACTIONS (6)
  - Withdrawal syndrome [Unknown]
  - Malaise [Unknown]
  - Palpitations [Unknown]
  - Visual impairment [Unknown]
  - Nausea [Unknown]
  - Drug ineffective [Unknown]
